FAERS Safety Report 6168352-2 (Version None)
Quarter: 2009Q2

REPORT INFORMATION
  Report Type: 
  Country: None (occurrence: None)
  Receive Date: 20090427
  Receipt Date: 20090417
  Transmission Date: 20091009
  Serious: Yes (Other)
  Sender: FDA-Public Use
  Company Number: US-NOVOPROD-286334

PATIENT
  Age: 11 Year
  Sex: Male
  Weight: 42.1 kg

DRUGS (1)
  1. NORDITROPIN NORDIFLEX [Suspect]
     Indication: GROWTH HORMONE DEFICIENCY
     Dosage: 1.725 MG, QD
     Route: 058
     Dates: start: 20090320, end: 20090415

REACTIONS (2)
  - BRAIN NEOPLASM [None]
  - PRE-EXISTING DISEASE [None]
